FAERS Safety Report 4719868-4 (Version None)
Quarter: 2005Q3

REPORT INFORMATION
  Report Type: 
  Country: None (occurrence: None)
  Receive Date: 20050721
  Receipt Date: 20041220
  Transmission Date: 20060218
  Serious: No
  Sender: FDA-Public Use
  Company Number: US-GLAXOSMITHKLINE-A0538039A

PATIENT
  Age: 74 Year
  Sex: Male

DRUGS (8)
  1. AVANDIA [Suspect]
     Dosage: 8MG PER DAY
     Route: 048
     Dates: start: 20041215
  2. TOPROL-XL [Concomitant]
  3. LEXAPRO [Concomitant]
  4. PACERONE [Concomitant]
  5. PLAVIX [Concomitant]
  6. NAMENDA [Concomitant]
  7. ARICEPT [Concomitant]
  8. CADUET [Concomitant]

REACTIONS (1)
  - JOINT SWELLING [None]
